FAERS Safety Report 25436293 (Version 1)
Quarter: 2025Q2

REPORT INFORMATION
  Report Type: Spontaneous
  Country: US (occurrence: US)
  Receive Date: 20250614
  Receipt Date: 20250614
  Transmission Date: 20250716
  Serious: Yes (Life-Threatening, Hospitalization)
  Sender: ALEXION PHARMACEUTICALS
  Company Number: US-AstraZeneca-CH-00890397A

PATIENT

DRUGS (1)
  1. XIGDUO XR [Suspect]
     Active Substance: DAPAGLIFLOZIN PROPANEDIOL\METFORMIN HYDROCHLORIDE
     Indication: Glycosylated haemoglobin increased
     Route: 065

REACTIONS (6)
  - Increased dose administered [Unknown]
  - Near death experience [Unknown]
  - Anion gap increased [Unknown]
  - Feeling abnormal [Unknown]
  - Asthenia [Unknown]
  - Asthenia [Unknown]
